FAERS Safety Report 7771512-8 (Version None)
Quarter: 2011Q3

REPORT INFORMATION
  Report Type: 
  Country: None (occurrence: None)
  Receive Date: 20110922
  Receipt Date: 20110919
  Transmission Date: 20111222
  Serious: Yes (Other)
  Sender: FDA-Public Use
  Company Number: US-PFIZER INC-2011221808

PATIENT
  Sex: Male
  Weight: 81.2 kg

DRUGS (7)
  1. NOVOLOG [Concomitant]
     Indication: DIABETES MELLITUS
     Dosage: 30 MG, DAILY
  2. LYRICA [Suspect]
     Indication: HEADACHE
  3. LOVASTATIN [Concomitant]
     Indication: BLOOD CHOLESTEROL ABNORMAL
     Dosage: 40 MG, DAILY
  4. CARVEDILOL [Concomitant]
     Indication: BLOOD PRESSURE ABNORMAL
     Dosage: 3.125 MG, DAILY
  5. BENICAR [Concomitant]
     Indication: BLOOD PRESSURE ABNORMAL
     Dosage: 40 MG, DAILY
  6. WELLBUTRIN [Concomitant]
     Indication: DEPRESSION
     Dosage: 150 MG, DAILY
  7. LYRICA [Suspect]
     Indication: NEUROPATHY PERIPHERAL
     Dosage: 50 MG MORNING AND 100 MG NIGHT
     Dates: start: 20110911

REACTIONS (6)
  - VISION BLURRED [None]
  - DRUG DOSE OMISSION [None]
  - CONFUSIONAL STATE [None]
  - HEADACHE [None]
  - COORDINATION ABNORMAL [None]
  - WITHDRAWAL SYNDROME [None]
